FAERS Safety Report 7732940-X (Version None)
Quarter: 2011Q3

REPORT INFORMATION
  Report Type: 
  Country: None (occurrence: None)
  Receive Date: 20110907
  Receipt Date: 20110901
  Transmission Date: 20111222
  Serious: Yes (Other)
  Sender: FDA-Public Use
  Company Number: US-PFIZER INC-2011205781

PATIENT
  Sex: Female
  Weight: 56.689 kg

DRUGS (9)
  1. NEURONTIN [Suspect]
     Indication: HOT FLUSH
     Dosage: UNK
     Dates: start: 20100101, end: 20100101
  2. NEURONTIN [Suspect]
     Indication: ARTHRALGIA
  3. TRAMADOL [Concomitant]
     Dosage: 50 MG, UNK
     Dates: start: 20110815
  4. TORADOL [Concomitant]
     Dosage: 30 MG, UNK
     Route: 042
     Dates: start: 20110815
  5. NEURONTIN [Suspect]
     Indication: PAIN IN EXTREMITY
     Dosage: 100 MG, 3X/DAY
     Dates: start: 20110101
  6. GEODON [Suspect]
     Indication: NAUSEA
     Dosage: 20 MG, UNK
     Route: 030
     Dates: start: 20110815, end: 20110801
  7. ZOFRAN [Concomitant]
     Dosage: 4 MG, 2X/DAY
     Route: 042
     Dates: start: 20110815
  8. FLEXERIL [Concomitant]
     Dosage: 10 MG, 3X/DAY
     Dates: start: 20110815
  9. DEXAMETHASONE [Concomitant]
     Dosage: 4 MG, UNK
     Dates: start: 20110815

REACTIONS (6)
  - DRUG ADMINISTRATION ERROR [None]
  - CARDIAC FLUTTER [None]
  - ATRIAL FIBRILLATION [None]
  - DRUG DOSE OMISSION [None]
  - HOT FLUSH [None]
  - SOMNOLENCE [None]
